FAERS Safety Report 4968298-9 (Version None)
Quarter: 2006Q2

REPORT INFORMATION
  Report Type: 
  Country: None (occurrence: None)
  Receive Date: 20060405
  Receipt Date: 20060322
  Transmission Date: 20061013
  Serious: Yes (Hospitalization)
  Sender: FDA-Public Use
  Company Number: 430005E06ITA

PATIENT
  Age: 41 Year
  Sex: Female

DRUGS (3)
  1. NOVANTRONE [Suspect]
     Dosage: 15 MG, 1 IN 1 DAYS
     Dates: start: 20050502, end: 20050506
  2. ATRACURIUM BESYLATE [Suspect]
     Dosage: 60 MG, 1 IN 1 DAYS
     Dates: start: 20050502, end: 20050516
  3. OTHERAPEUTIC AGENTS, CONTROL FOR GEMTUZUMAB OZOGAMICIN (OTHER CHEMOTHE [Concomitant]

REACTIONS (1)
  - PANCYTOPENIA [None]
